FAERS Safety Report 15884625 (Version 1)
Quarter: 2019Q1

REPORT INFORMATION
  Report Type: Spontaneous
  Country: IT (occurrence: IT)
  Receive Date: 20190129
  Receipt Date: 20190129
  Transmission Date: 20190417
  Serious: Yes (Other)
  Sender: FDA-Public Use
  Company Number: IT-SA-2019SA020766

PATIENT
  Age: 65 Year
  Sex: Male

DRUGS (11)
  1. OXALIPLATIN. [Suspect]
     Active Substance: OXALIPLATIN
     Dosage: UNK
     Route: 042
     Dates: start: 20181001, end: 20181001
  2. ASACOL [Concomitant]
     Active Substance: MESALAMINE
     Dosage: 800 MG, UNK
     Route: 048
  3. YOVIS [Concomitant]
  4. OXALIPLATIN. [Suspect]
     Active Substance: OXALIPLATIN
     Indication: RECTAL CANCER
     Dosage: UNK
     Route: 042
     Dates: start: 20180401, end: 20180401
  5. DOXIFLURIDINE [Suspect]
     Active Substance: DOXIFLURIDINE
     Indication: RECTAL CANCER
     Dosage: UNK
     Route: 042
     Dates: start: 20180401, end: 20180401
  6. DOXIFLURIDINE [Suspect]
     Active Substance: DOXIFLURIDINE
     Dosage: UNK
     Route: 042
     Dates: start: 20181001, end: 20181001
  7. BEVACIZUMAB. [Suspect]
     Active Substance: BEVACIZUMAB
     Dosage: UNK
     Route: 042
     Dates: start: 20181101, end: 20181101
  8. FENTANYL. [Concomitant]
     Active Substance: FENTANYL
  9. BEVACIZUMAB. [Suspect]
     Active Substance: BEVACIZUMAB
     Indication: RECTAL CANCER
     Dosage: UNK
     Route: 042
     Dates: start: 20180401, end: 20180401
  10. LENIZAK [Concomitant]
     Active Substance: DEXKETOPROFEN\TRAMADOL
  11. CONTRAMAL [Concomitant]
     Active Substance: TRAMADOL HYDROCHLORIDE

REACTIONS (2)
  - Neoplasm progression [Unknown]
  - Neuropathy peripheral [Unknown]

NARRATIVE: CASE EVENT DATE: 20181101
